FAERS Safety Report 9536352 (Version 1)
Quarter: 2013Q2

REPORT INFORMATION
  Report Type: Spontaneous
  Country: US (occurrence: None)
  Receive Date: 20130507
  Receipt Date: 20130507
  Transmission Date: 20140414
  Serious: No
  Sender: FDA-Public Use
  Company Number: PHEH2013US000545

PATIENT
  Sex: Male

DRUGS (14)
  1. AFINITOR [Suspect]
     Indication: RENAL CELL CARCINOMA
     Route: 048
  2. ASA (ACETYLSALICYLIC ACID) [Concomitant]
  3. ATENOLOL (ATENOLOL) [Concomitant]
  4. BICALUTAMIDE (BICALUTAMIDE) [Concomitant]
  5. CALCIUM (CALCIUM) [Concomitant]
  6. GLIPIZIDE (GLIPIZIDE) [Concomitant]
  7. HYDROCHLOROTH (HYDROCHLOROTHIAZIDE) [Concomitant]
  8. LISINOPRIL (LISINOPRIL) [Concomitant]
  9. MULTIVITAMINS (ASCORBIC ACID, ERGOCALCIFEROL, FOLIC ACID, NICOTINAMIDE, PANTHENOL, RETINOL, RIBOFLAVIN, THIAMINE HYDROCHLORIIDE) [Concomitant]
  10. SIMVASTATIN (SIMVASTATIN) [Concomitant]
  11. ZOLPIDEM (ZOLPIDEM) [Concomitant]
  12. VITAMIN C (ERGOCALCIFEROL) [Concomitant]
  13. IMODIUM (LOPERAMIDE HYDROCHLORIDE) [Concomitant]
  14. AMLODIPINE (AMLODIPINE) [Concomitant]

REACTIONS (1)
  - Diarrhoea [None]
